FAERS Safety Report 19680949 (Version 1)
Quarter: 2021Q3

REPORT INFORMATION
  Report Type: Spontaneous
  Country: CA (occurrence: CA)
  Receive Date: 20210810
  Receipt Date: 20210810
  Transmission Date: 20211014
  Serious: Yes (Life-Threatening, Hospitalization)
  Sender: FDA-Public Use
  Company Number: CA-PFIZER INC-202100962360

PATIENT
  Age: 34 Year
  Sex: Female
  Weight: 81 kg

DRUGS (10)
  1. OLANZAPINE. [Concomitant]
     Active Substance: OLANZAPINE
     Dosage: UNK
  2. FILGRASTIM [Concomitant]
     Active Substance: FILGRASTIM
     Dosage: UNK
  3. EMEND [Concomitant]
     Active Substance: APREPITANT
     Dosage: UNK
  4. CISPLATIN. [Suspect]
     Active Substance: CISPLATIN
     Indication: CARCINOID TUMOUR OF THE OVARY
     Dosage: UNK
  5. DEXAMETHASONE. [Concomitant]
     Active Substance: DEXAMETHASONE
     Dosage: UNK
     Route: 065
  6. HYDROCORTISONE. [Concomitant]
     Active Substance: HYDROCORTISONE
     Dosage: UNK
  7. ETOPOSIDE. [Suspect]
     Active Substance: ETOPOSIDE
     Indication: CARCINOID TUMOUR OF THE OVARY
     Dosage: UNK
  8. LORAZEPAM. [Concomitant]
     Active Substance: LORAZEPAM
     Dosage: UNK
  9. BLEOMYCIN SULFATE [Suspect]
     Active Substance: BLEOMYCIN SULFATE
     Indication: CARCINOID TUMOUR OF THE OVARY
     Dosage: UNK
  10. ACETAMINOPHEN. [Concomitant]
     Active Substance: ACETAMINOPHEN
     Dosage: UNK

REACTIONS (2)
  - Off label use [Unknown]
  - Febrile neutropenia [Recovered/Resolved]
